FAERS Safety Report 21291951 (Version 1)
Quarter: 2022Q3

REPORT INFORMATION
  Report Type: Other
  Country: QA (occurrence: None)
  Receive Date: 20220904
  Receipt Date: 20220904
  Transmission Date: 20221027
  Serious: Yes (Other)
  Sender: FDA-Public Use
  Company Number: None

PATIENT
  Sex: Female

DRUGS (2)
  1. ATOVAQUONE [Suspect]
     Active Substance: ATOVAQUONE
     Indication: Chronic granulomatous disease
     Dosage: 1500MG
     Route: 065
  2. CLARITHROMYCIN [Suspect]
     Active Substance: CLARITHROMYCIN
     Indication: Chronic granulomatous disease
     Dosage: 250 MG
     Route: 065

REACTIONS (1)
  - Drug intolerance [Unknown]
